FAERS Safety Report 5621167-3 (Version None)
Quarter: 2008Q1

REPORT INFORMATION
  Report Type: 
  Country: None (occurrence: None)
  Receive Date: 20080114
  Receipt Date: 20061206
  Transmission Date: 20080703
  Serious: Yes (Hospitalization)
  Sender: FDA-Public Use
  Company Number: A03200607278

PATIENT
  Age: 74 Year
  Sex: Male
  Weight: 87.98 kg

DRUGS (5)
  1. PLAVIX [Suspect]
     Indication: UNEVALUABLE EVENT
     Dosage: 75 MG QD - ORAL
     Route: 048
     Dates: start: 20010101, end: 20051231
  2. ACETYLSALICYLIC ACID SRT [Concomitant]
  3. PHENYTOIN SODIUM [Concomitant]
  4. ASCORBIC ACID [Concomitant]
  5. PARACETAMOL [Concomitant]

REACTIONS (2)
  - CEREBRAL HAEMORRHAGE [None]
  - CEREBROVASCULAR ACCIDENT [None]
